FAERS Safety Report 6738288-4 (Version None)
Quarter: 2010Q2

REPORT INFORMATION
  Report Type: 
  Country: None (occurrence: None)
  Receive Date: 20100524
  Receipt Date: 20100514
  Transmission Date: 20101027
  Serious: Yes (Death)
  Sender: FDA-Public Use
  Company Number: B0652863A

PATIENT
  Sex: Female

DRUGS (4)
  1. COMBIVIR [Suspect]
     Dosage: 2TAB PER DAY
     Dates: start: 20090623, end: 20091220
  2. RETROVIR [Suspect]
     Dosage: 4MGK PER DAY
     Dates: start: 20091220, end: 20091220
  3. NORVIR [Suspect]
     Dosage: 200MG PER DAY
     Dates: start: 20090623, end: 20091220
  4. INVIRASE [Suspect]
     Dosage: 2000MG PER DAY
     Dates: start: 20090623, end: 20091220

REACTIONS (6)
  - AMMONIA INCREASED [None]
  - DRUG EXPOSURE DURING PREGNANCY [None]
  - HEPATOCELLULAR INJURY [None]
  - HYPERLACTACIDAEMIA [None]
  - MITOCHONDRIAL CYTOPATHY [None]
  - MULTI-ORGAN FAILURE [None]
